FAERS Safety Report 9412448 (Version 2)
Quarter: 2013Q3

REPORT INFORMATION
  Report Type: Report from Study
  Country: DE (occurrence: DE)
  Receive Date: 20130722
  Receipt Date: 20130729
  Transmission Date: 20140515
  Serious: Yes (Life-Threatening, Hospitalization)
  Sender: FDA-Public Use
  Company Number: DE-009507513-1307DEU009291

PATIENT
  Age: 59 Year
  Sex: Male

DRUGS (6)
  1. BOCEPREVIR [Suspect]
     Indication: CHRONIC HEPATITIS C
     Dosage: 800 MG, TID
     Route: 048
     Dates: start: 20130315, end: 201307
  2. PEGINTERFERON ALFA-2A [Suspect]
     Indication: CHRONIC HEPATITIS C
     Route: 058
  3. RIBAVIRIN [Suspect]
     Indication: CHRONIC HEPATITIS C
     Route: 048
  4. BIFITERAL [Concomitant]
     Dosage: 10 ML, TID
     Dates: start: 201306
  5. PANTOZOL [Concomitant]
     Dosage: 40 MG, BID
     Dates: start: 201306
  6. ALDACTONE TABLETS [Concomitant]
     Dosage: 200 MG, QD
     Route: 048
     Dates: start: 201306

REACTIONS (1)
  - Ascites [Recovered/Resolved]
